FAERS Safety Report 8450371-4 (Version None)
Quarter: 2012Q2

REPORT INFORMATION
  Report Type: 
  Country: None (occurrence: None)
  Receive Date: 20120620
  Receipt Date: 20120614
  Transmission Date: 20120825
  Serious: Yes (Death, Hospitalization, Other)
  Sender: FDA-Public Use
  Company Number: CO-PFIZER INC-2012144871

PATIENT
  Age: 87 Year
  Sex: Female

DRUGS (2)
  1. PROPRANOLOL [Concomitant]
     Indication: HYPERTENSION
     Dosage: 40 MG, 1 TABLET PER DAY ORALLY
     Route: 048
     Dates: start: 20100101
  2. LYRICA [Suspect]
     Indication: CONVULSION
     Dosage: 150 MG, 1 TABLET DAILY ORALLY
     Route: 048
     Dates: start: 20070101

REACTIONS (3)
  - FALL [None]
  - RESPIRATORY ARREST [None]
  - HIP FRACTURE [None]
